FAERS Safety Report 10099040 (Version 1)
Quarter: 2014Q2

REPORT INFORMATION
  Report Type: Spontaneous
  Country: US (occurrence: US)
  Receive Date: 20140423
  Receipt Date: 20140423
  Transmission Date: 20141212
  Serious: No
  Sender: FDA-Public Use
  Company Number: US-GILEAD-2012-0066669

PATIENT
  Sex: Male

DRUGS (3)
  1. LETAIRIS [Suspect]
     Indication: COR PULMONALE CHRONIC
     Dosage: 10 MG, QD
     Route: 048
     Dates: start: 20110427
  2. REVATIO [Suspect]
  3. EPOPROSTENOL [Concomitant]

REACTIONS (3)
  - Dyspepsia [Unknown]
  - Diarrhoea [Unknown]
  - Nausea [Unknown]
